FAERS Safety Report 12144694 (Version 1)
Quarter: 2016Q1

REPORT INFORMATION
  Report Type: Other
  Country: US (occurrence: US)
  Receive Date: 20160304
  Receipt Date: 20160304
  Transmission Date: 20160526
  Serious: No
  Sender: FDA-Public Use
  Company Number: US-ACORDA-ACO_119922_2015

PATIENT
  Sex: Female

DRUGS (1)
  1. AMPYRA [Suspect]
     Active Substance: DALFAMPRIDINE
     Indication: PRODUCT USED FOR UNKNOWN INDICATION
     Dosage: 10 MG, Q 12 HRS
     Route: 048
     Dates: start: 20151105

REACTIONS (6)
  - Urinary retention [Unknown]
  - Abdominal pain upper [Unknown]
  - Bladder pain [Unknown]
  - Vomiting [Unknown]
  - Gastric disorder [Unknown]
  - Diarrhoea [Unknown]
